FAERS Safety Report 4468482-7 (Version None)
Quarter: 2004Q4

REPORT INFORMATION
  Report Type: 
  Country: None (occurrence: None)
  Receive Date: 20041006
  Receipt Date: 20040930
  Transmission Date: 20050328
  Serious: Yes (Hospitalization, Other)
  Sender: FDA-Public Use
  Company Number: 04-09-1368

PATIENT
  Age: 92 Year
  Sex: Male

DRUGS (10)
  1. FAMOTIDINE [Suspect]
     Dosage: 20MG BID ORAL
     Route: 048
  2. VANCOMYCIN [Concomitant]
  3. TICARCILLIN DISODIUM/CLAVULANATE POTASSIUM [Concomitant]
  4. ASPIRIN [Concomitant]
  5. HEPARIN [Concomitant]
  6. METOPROLOL [Concomitant]
  7. FENTANYL [Concomitant]
  8. MIDAZOLAM HCL [Concomitant]
  9. VITAMIN K [Concomitant]
  10. INSULIN [Concomitant]

REACTIONS (9)
  - ACUTE RESPIRATORY FAILURE [None]
  - CONDITION AGGRAVATED [None]
  - ELECTROCARDIOGRAM QT CORRECTED INTERVAL PROLONGED [None]
  - GENITOURINARY TRACT INFECTION [None]
  - MULTI-ORGAN FAILURE [None]
  - MYOCARDIAL INFARCTION [None]
  - RENAL FAILURE [None]
  - SEPSIS [None]
  - TORSADE DE POINTES [None]
